FAERS Safety Report 10903034 (Version 6)
Quarter: 2015Q4

REPORT INFORMATION
  Report Type: Report from Study
  Country: UY (occurrence: UY)
  Receive Date: 20150311
  Receipt Date: 20151112
  Transmission Date: 20160304
  Serious: Yes (Hospitalization, Other)
  Sender: FDA-Public Use
  Company Number: UY-ROCHE-1418070

PATIENT
  Age: 57 Year
  Sex: Female

DRUGS (3)
  1. AVASTIN [Suspect]
     Active Substance: BEVACIZUMAB
     Indication: PRODUCT USED FOR UNKNOWN INDICATION
     Route: 065
  2. OXALIPLATIN. [Concomitant]
     Active Substance: OXALIPLATIN
  3. XELODA [Suspect]
     Active Substance: CAPECITABINE
     Indication: COLON CANCER
     Dosage: 2000MG AM + 1500MG PM
     Route: 048
     Dates: start: 20130614

REACTIONS (21)
  - Lung neoplasm [Unknown]
  - Thrombocytopenia [Unknown]
  - Nausea [Unknown]
  - Abdominal discomfort [Not Recovered/Not Resolved]
  - Gastrointestinal stoma complication [Unknown]
  - Nervousness [Unknown]
  - Diabetes mellitus [Unknown]
  - Influenza [Unknown]
  - Asthenia [Unknown]
  - Immunosuppression [Unknown]
  - Abdominal pain upper [Unknown]
  - Cough [Unknown]
  - Hyperchlorhydria [Unknown]
  - Hypertension [Recovered/Resolved]
  - Blood cholesterol increased [Unknown]
  - Headache [Unknown]
  - Depressed mood [Unknown]
  - Aphonia [Unknown]
  - Swelling face [Recovered/Resolved]
  - Palmar-plantar erythrodysaesthesia syndrome [Unknown]
  - Blood uric acid increased [Unknown]

NARRATIVE: CASE EVENT DATE: 201508
